FAERS Safety Report 7636103-8 (Version None)
Quarter: 2011Q3

REPORT INFORMATION
  Report Type: 
  Country: None (occurrence: None)
  Receive Date: 20110726
  Receipt Date: 20110720
  Transmission Date: 20111222
  Serious: Yes (Other)
  Sender: FDA-Public Use
  Company Number: DE-GLAXOSMITHKLINE-B0733454A

PATIENT
  Age: 47 Year
  Sex: Female
  Weight: 87 kg

DRUGS (2)
  1. ORAL CONTRACEPTION [Concomitant]
  2. ALLI [Suspect]
     Indication: WEIGHT DECREASED
     Dosage: 1CAP PER DAY
     Route: 065
     Dates: start: 20110703, end: 20110703

REACTIONS (1)
  - RECTAL HAEMORRHAGE [None]
